FAERS Safety Report 8094559-3 (Version None)
Quarter: 2011Q4

REPORT INFORMATION
  Report Type: 
  Country: None (occurrence: None)
  Receive Date: 20111222
  Receipt Date: 20110926
  Transmission Date: 20120403
  Serious: Yes (Hospitalization)
  Sender: FDA-Public Use
  Company Number: UTC-010501

PATIENT
  Age: 68 Year
  Sex: Male
  Weight: 147.7 kg

DRUGS (2)
  1. ADCIRCA (TADALAFIL) (UNKNOWN) [Concomitant]
  2. TYVASO [Suspect]
     Indication: PULMONARY ARTERIAL HYPERTENSION
     Dosage: 3 TO 9 BREATHS (18 TO 54 MCG) (4 IN 1 D), INHALATION
     Route: 055
     Dates: start: 20110117

REACTIONS (1)
  - DYSPNOEA [None]
